FAERS Safety Report 16776765 (Version 2)
Quarter: 2025Q3

REPORT INFORMATION
  Report Type: Spontaneous
  Country: US (occurrence: US)
  Receive Date: 20190905
  Receipt Date: 20250718
  Transmission Date: 20251020
  Serious: No
  Sender: SANOFI AVENTIS
  Company Number: US-SA-2019SA247315

PATIENT
  Age: 56 Year
  Sex: Female

DRUGS (8)
  1. KEVZARA [Suspect]
     Active Substance: SARILUMAB
     Indication: Anaemia
     Dosage: 200 MG, QOW
     Route: 058
     Dates: start: 20190709
  2. METHOTREXATE [Concomitant]
     Active Substance: METHOTREXATE
  3. MELOXICAM [Concomitant]
     Active Substance: MELOXICAM
  4. TRAMADOL HCL [Concomitant]
     Active Substance: TRAMADOL HYDROCHLORIDE
  5. METOPROLOL [Concomitant]
     Active Substance: METOPROLOL
  6. AMLODIPINE [Concomitant]
     Active Substance: AMLODIPINE BESYLATE
  7. LEFLUNOMIDE [Concomitant]
     Active Substance: LEFLUNOMIDE
  8. ARMOUR THYROID [Concomitant]
     Active Substance: THYROID, PORCINE

REACTIONS (3)
  - Injection site discolouration [Not Recovered/Not Resolved]
  - Injection site irritation [Not Recovered/Not Resolved]
  - Product use in unapproved indication [Unknown]
